FAERS Safety Report 23246402 (Version 1)
Quarter: 2023Q4

REPORT INFORMATION
  Report Type: Spontaneous
  Country: US (occurrence: US)
  Receive Date: 20231130
  Receipt Date: 20231130
  Transmission Date: 20240110
  Serious: No
  Sender: FDA-Public Use
  Company Number: US-SA-SAC20231122001440

PATIENT
  Age: 7 Year
  Sex: Male
  Weight: 25.4 kg

DRUGS (1)
  1. DUPIXENT [Suspect]
     Active Substance: DUPILUMAB
     Indication: Dermatitis atopic
     Dosage: 300MG Q4W
     Route: 058
     Dates: start: 20230725

REACTIONS (2)
  - Cough [Recovered/Resolved]
  - Ear pain [Recovered/Resolved]

NARRATIVE: CASE EVENT DATE: 20231101
